FAERS Safety Report 5415432-2 (Version None)
Quarter: 2007Q3

REPORT INFORMATION
  Report Type: 
  Country: None (occurrence: None)
  Receive Date: 20070815
  Receipt Date: 20070806
  Transmission Date: 20080115
  Serious: Yes (Other)
  Sender: FDA-Public Use
  Company Number: US-BRACCO-BDI-009895

PATIENT
  Age: 40 Year
  Sex: Female

DRUGS (7)
  1. MULTIHANCE [Suspect]
     Route: 042
     Dates: start: 20070730, end: 20070730
  2. MULTIHANCE [Suspect]
     Indication: NUCLEAR MAGNETIC RESONANCE IMAGING ABDOMINAL
     Route: 042
     Dates: start: 20070730, end: 20070730
  3. VANCOMYCIN [Concomitant]
     Dosage: 17 DOSES
     Route: 050
     Dates: start: 20070724, end: 20070801
  4. MORPHINE [Concomitant]
     Route: 042
     Dates: start: 20070803, end: 20070803
  5. PEPCID                             /01596501/ [Concomitant]
     Route: 050
     Dates: start: 20070731
  6. PROTONIX                           /01263201/ [Concomitant]
     Route: 042
     Dates: start: 20070727
  7. ZOSYN [Concomitant]
     Route: 042
     Dates: start: 20070726

REACTIONS (1)
  - RENAL FAILURE [None]
